FAERS Safety Report 8737889 (Version 3)
Quarter: 2013Q1

REPORT INFORMATION
  Report Type: Report from Study
  Country: JP (occurrence: JP)
  Receive Date: 20120823
  Receipt Date: 20130131
  Transmission Date: 20140127
  Serious: Yes (Hospitalization)
  Sender: FDA-Public Use
  Company Number: JP-009507513-1208JPN003966

PATIENT
  Age: 59 Year
  Sex: Male
  Weight: 63 kg

DRUGS (19)
  1. PEGINTRON [Suspect]
     Indication: CHRONIC HEPATITIS C
     Dosage: 1.5 MICROGRAM PER KILOGRAM, QW
     Route: 058
     Dates: start: 20120426, end: 20120711
  2. PEGINTRON [Suspect]
     Dosage: 0.8 MICROGRAM PER KILOGRAM, UNK
     Route: 058
     Dates: start: 20120712, end: 20120726
  3. PEGINTRON [Suspect]
     Dosage: 1.5 MICROGRAM PER KILOGRAM, UNK
     Route: 058
     Dates: start: 20120802, end: 20121009
  4. REBETOL [Suspect]
     Indication: CHRONIC HEPATITIS C
     Dosage: 600 MG, QD
     Route: 048
     Dates: start: 20120426, end: 20120704
  5. REBETOL [Suspect]
     Dosage: 400 MG,QD
     Route: 048
     Dates: start: 20120705, end: 20120711
  6. REBETOL [Suspect]
     Dosage: 200 MG,QD
     Route: 048
     Dates: start: 20120726, end: 20120802
  7. REBETOL [Suspect]
     Dosage: 400 MG, QD
     Route: 048
     Dates: start: 20120803, end: 20120809
  8. REBETOL [Suspect]
     Dosage: 500 MG, QD (ALTERATION OF 400 MG AND 600 MG)
     Route: 048
     Dates: start: 20120810, end: 20120814
  9. REBETOL [Suspect]
     Dosage: 600 UNK, UNK
     Route: 048
     Dates: start: 20120815, end: 20121011
  10. TELAVIC [Suspect]
     Indication: CHRONIC HEPATITIS C
     Dosage: 2250 MG, QD
     Route: 048
     Dates: start: 20120426, end: 20120711
  11. TELAVIC [Suspect]
     Dosage: 1500 MG, ONCE
     Route: 048
     Dates: start: 20120712, end: 20120718
  12. SOLYUGEN F [Concomitant]
     Indication: RENAL DISORDER
     Route: 042
     Dates: start: 20120501, end: 20120507
  13. LIPOL [Concomitant]
     Indication: HYPERURICAEMIA
     Dosage: 100MG, QD
     Route: 048
     Dates: start: 20120503
  14. DERMOVATE [Concomitant]
     Indication: FOLLICULITIS
     Route: 051
     Dates: start: 20120517
  15. KOLANTYL [Concomitant]
     Indication: PROPHYLAXIS
     Dosage: 1 G, QD
     Route: 048
     Dates: start: 20120517, end: 20121129
  16. MYSER (DIFLUPREDNATE) [Concomitant]
     Indication: FOLLICULITIS
     Dosage: 5 GM, QD
     Route: 061
     Dates: start: 20120524, end: 20121024
  17. RINDERON VG [Concomitant]
     Indication: FOLLICULITIS
     Dosage: QUANTITY NEEDED
     Route: 061
     Dates: start: 20120606, end: 20120620
  18. FAMOTIDINE [Concomitant]
     Indication: PROPHYLAXIS
     Dosage: 20 MG, QD
     Route: 048
  19. LOXONIN [Concomitant]
     Indication: PYREXIA
     Dosage: 60 MG PER DAY AS NEEDED
     Route: 048
     Dates: start: 20120517

REACTIONS (1)
  - Anaemia [Recovering/Resolving]
